FAERS Safety Report 9360842 (Version 1)
Quarter: 2013Q2

REPORT INFORMATION
  Report Type: Spontaneous
  Country: US (occurrence: None)
  Receive Date: 20130620
  Receipt Date: 20130620
  Transmission Date: 20140414
  Serious: Yes (Hospitalization)
  Sender: FDA-Public Use
  Company Number: None

PATIENT
  Age: 73 Year
  Sex: Male
  Weight: 85 kg

DRUGS (2)
  1. HCTZ [Suspect]
     Indication: HYPERTENSION
     Route: 048
  2. GABAPENTIN [Suspect]
     Route: 048

REACTIONS (1)
  - Pancreatitis acute [None]
